FAERS Safety Report 8290445-4 (Version None)
Quarter: 2012Q2

REPORT INFORMATION
  Report Type: 
  Country: None (occurrence: None)
  Receive Date: 20120417
  Receipt Date: 20110714
  Transmission Date: 20120825
  Serious: No
  Sender: FDA-Public Use
  Company Number: US-ASTRAZENECA-2011SE42332

PATIENT
  Sex: Male

DRUGS (5)
  1. MELOXICAM [Concomitant]
  2. NEXIUM [Suspect]
     Indication: GASTROOESOPHAGEAL REFLUX DISEASE
     Route: 048
     Dates: start: 20101001, end: 20110601
  3. KLONOPIN [Concomitant]
  4. NEXIUM [Suspect]
     Route: 048
     Dates: start: 20110701
  5. ASPIRIN [Concomitant]

REACTIONS (5)
  - ABDOMINAL PAIN [None]
  - ABDOMINAL DISCOMFORT [None]
  - DYSPEPSIA [None]
  - DRUG DOSE OMISSION [None]
  - DIARRHOEA [None]
